FAERS Safety Report 23461737 (Version 1)
Quarter: 2024Q1

REPORT INFORMATION
  Report Type: Spontaneous
  Country: CN (occurrence: CN)
  Receive Date: 20240131
  Receipt Date: 20240131
  Transmission Date: 20240410
  Serious: Yes (Other)
  Sender: FDA-Public Use
  Company Number: CN-009507513-2401CHN015365

PATIENT
  Age: 57 Year
  Sex: Female
  Weight: 38 kg

DRUGS (3)
  1. INVANZ [Suspect]
     Active Substance: ERTAPENEM SODIUM
     Indication: Anti-infective therapy
     Dosage: 1 G, QD
     Dates: start: 20240113, end: 20240114
  2. SODIUM CHLORIDE [Concomitant]
     Active Substance: SODIUM CHLORIDE
     Indication: Medication dilution
     Dosage: 50 ML, QD
     Dates: start: 20240113, end: 20240114
  3. STERILE WATER [Concomitant]
     Active Substance: WATER
     Indication: Medication dilution
     Dosage: 10 ML, QD
     Dates: start: 20240113, end: 20240114

REACTIONS (1)
  - Epilepsy [Recovering/Resolving]

NARRATIVE: CASE EVENT DATE: 20240114
